FAERS Safety Report 7572552-4 (Version None)
Quarter: 2011Q2

REPORT INFORMATION
  Report Type: 
  Country: None (occurrence: None)
  Receive Date: 20110627
  Receipt Date: 20110614
  Transmission Date: 20111010
  Serious: Yes (Other)
  Sender: FDA-Public Use
  Company Number: CH-BIOGENIDEC-2011BI023003

PATIENT
  Sex: Female
  Weight: 2 kg

DRUGS (1)
  1. AVONEX [Suspect]
     Indication: PRODUCT USED FOR UNKNOWN INDICATION
     Route: 064
     Dates: end: 20100801

REACTIONS (1)
  - FOETAL GROWTH RESTRICTION [None]
